FAERS Safety Report 19918882 (Version 1)
Quarter: 2021Q4

REPORT INFORMATION
  Report Type: Spontaneous
  Country: ES (occurrence: ES)
  Receive Date: 20211005
  Receipt Date: 20211005
  Transmission Date: 20220303
  Serious: Yes (Other)
  Sender: FDA-Public Use
  Company Number: ES-ASTPRD-AER-2021-00466

PATIENT

DRUGS (1)
  1. ENZALUTAMIDE [Suspect]
     Active Substance: ENZALUTAMIDE
     Indication: Product used for unknown indication
     Dosage: UNK UNK, UNKNOWN FREQ.
     Route: 065

REACTIONS (7)
  - Malignant neoplasm progression [Unknown]
  - Erectile dysfunction [Unknown]
  - Fall [Unknown]
  - Asthenia [Unknown]
  - Hypertension [Unknown]
  - Oedema peripheral [Unknown]
  - Musculoskeletal chest pain [Unknown]
